FAERS Safety Report 10697325 (Version 3)
Quarter: 2015Q1

REPORT INFORMATION
  Report Type: Report from Study
  Country: FR (occurrence: FR)
  Receive Date: 20150108
  Receipt Date: 20150317
  Transmission Date: 20150721
  Serious: Yes (Hospitalization, Other)
  Sender: FDA-Public Use
  Company Number: PHHY2014FR170332

PATIENT
  Age: 18 Year
  Sex: Female
  Weight: 48 kg

DRUGS (26)
  1. SACCHAROSE [Concomitant]
     Indication: PRODUCT USED FOR UNKNOWN INDICATION
     Route: 065
  2. PROPYL PARAHYDROXYBENZOATE [Concomitant]
     Indication: PRODUCT USED FOR UNKNOWN INDICATION
     Dosage: 2 DF, BID
     Route: 065
  3. DOMPERIDONE [Concomitant]
     Active Substance: DOMPERIDONE
     Indication: PRODUCT USED FOR UNKNOWN INDICATION
     Dosage: 10 MG, QD
     Route: 065
  4. GENERIC CICLOSPORIN [Suspect]
     Active Substance: CYCLOSPORINE
     Indication: BONE MARROW FAILURE
     Dosage: 150 MG, BID (MORNNING AND EVENNING)
     Route: 048
     Dates: start: 20121215, end: 20130819
  5. EXACYL [Concomitant]
     Active Substance: TRANEXAMIC ACID
     Indication: PRODUCT USED FOR UNKNOWN INDICATION
     Dosage: UNK
     Route: 065
  6. VALACICLOVIR [Concomitant]
     Active Substance: VALACYCLOVIR HYDROCHLORIDE
     Indication: PRODUCT USED FOR UNKNOWN INDICATION
     Dosage: 1 DF, BID
     Route: 065
  7. DIMETICON [Concomitant]
     Indication: PRODUCT USED FOR UNKNOWN INDICATION
     Route: 065
  8. ATGAM [Suspect]
     Active Substance: EQUINE THYMOCYTE IMMUNE GLOBULIN
     Indication: ANAEMIA
     Dosage: UNK
     Route: 065
  9. PERFALGAN [Concomitant]
     Active Substance: ACETAMINOPHEN
     Indication: PRODUCT USED FOR UNKNOWN INDICATION
     Dosage: 1 G, TID (AS PREMEDICATION)
     Route: 065
  10. SORBITOL. [Concomitant]
     Active Substance: SORBITOL
     Indication: PRODUCT USED FOR UNKNOWN INDICATION
     Route: 065
  11. ZELITREX [Concomitant]
     Active Substance: VALACYCLOVIR HYDROCHLORIDE
     Indication: PRODUCT USED FOR UNKNOWN INDICATION
     Dosage: 500 MG, BID
     Route: 065
  12. SOLU-MEDROL [Concomitant]
     Active Substance: METHYLPREDNISOLONE SODIUM SUCCINATE
     Indication: PRODUCT USED FOR UNKNOWN INDICATION
     Dosage: 30 MG, ONCE/SINGLE (1 HOUR BEFORE INJECTION OF ATGAM AS PREMEDICATION)
     Route: 065
  13. OROZAMUDOL [Concomitant]
     Active Substance: TRAMADOL
     Indication: PAIN
     Dosage: 50 MG, QD
     Route: 065
  14. LUTENYL [Concomitant]
     Active Substance: NOMEGESTROL ACETATE
     Indication: PRODUCT USED FOR UNKNOWN INDICATION
     Dosage: 5 MG, QD
     Route: 065
  15. GENERIC CICLOSPORIN [Suspect]
     Active Substance: CYCLOSPORINE
     Dosage: 100 MG, BID
     Route: 048
     Dates: start: 20130819, end: 201310
  16. CERAZETTE [Concomitant]
     Active Substance: DESOGESTREL
     Indication: CONTRACEPTION
     Dosage: UNK
     Route: 065
  17. PREDNISOLONE. [Concomitant]
     Active Substance: PREDNISOLONE
     Indication: BONE MARROW FAILURE
     Dosage: 100 MG, QD
     Route: 042
     Dates: start: 20130814, end: 20130818
  18. PREDNISOLONE. [Concomitant]
     Active Substance: PREDNISOLONE
     Dosage: (DECREASED HALF A DOSE EVERY 5 DAYS)
     Route: 042
     Dates: end: 20130914
  19. ATGAM [Suspect]
     Active Substance: EQUINE THYMOCYTE IMMUNE GLOBULIN
     Indication: THROMBOCYTOPENIA
     Dosage: 40 MG/KG, QD
     Route: 065
     Dates: start: 20130816, end: 20130818
  20. MOTILIUM [Concomitant]
     Active Substance: DOMPERIDONE
     Indication: PRODUCT USED FOR UNKNOWN INDICATION
     Dosage: 2 DF, BID (MORNING AND EVENING AT NEORAL INTAKE, IN ASSOCIATION WITH POLYSILANE GEL)
     Route: 048
  21. ATGAM [Suspect]
     Active Substance: EQUINE THYMOCYTE IMMUNE GLOBULIN
     Indication: BONE MARROW FAILURE
     Dosage: 40 MG/KG, QD
     Route: 065
     Dates: start: 20130814, end: 20130814
  22. EUPHYTOSE [Concomitant]
     Active Substance: HERBALS
     Indication: PRODUCT USED FOR UNKNOWN INDICATION
     Dosage: UNK
     Route: 065
  23. POLYSILON GEL [Concomitant]
     Indication: PRODUCT USED FOR UNKNOWN INDICATION
     Dosage: (TAKEN IN ASSOCIATION WITH MOTILIUM)
     Route: 065
  24. INEXIUM [Concomitant]
     Active Substance: ESOMEPRAZOLE
     Indication: PRODUCT USED FOR UNKNOWN INDICATION
     Dosage: 20 MG, BID
     Route: 065
  25. CORTANCYL [Concomitant]
     Active Substance: PREDNISONE
     Indication: PRODUCT USED FOR UNKNOWN INDICATION
     Dosage: 20 MG
     Route: 065
  26. POLARAMINE [Concomitant]
     Active Substance: DEXCHLORPHENIRAMINE MALEATE
     Indication: PRODUCT USED FOR UNKNOWN INDICATION
     Dosage: 100 MG, (AS PREMEDICATION)
     Route: 065

REACTIONS (29)
  - Pruritus [Unknown]
  - Overdose [Unknown]
  - Urticaria [Unknown]
  - White blood cell count decreased [Unknown]
  - Insomnia [Unknown]
  - Headache [Recovered/Resolved]
  - Sinusitis [Unknown]
  - Vomiting [Unknown]
  - Red blood cell count decreased [Unknown]
  - Rhinorrhoea [Unknown]
  - Neutrophil percentage decreased [Unknown]
  - Cough [Recovered/Resolved]
  - Purpura [Unknown]
  - Nasopharyngitis [Recovered/Resolved]
  - Metrorrhagia [Unknown]
  - Haemoglobin decreased [Unknown]
  - General physical health deterioration [Unknown]
  - Pelvic pain [Unknown]
  - Productive cough [Unknown]
  - Pyrexia [Recovered/Resolved]
  - Haemoptysis [Unknown]
  - Platelet count decreased [Unknown]
  - Immunosuppressant drug level increased [Recovered/Resolved]
  - Nausea [Unknown]
  - Neutrophil count decreased [Unknown]
  - Drug ineffective [Unknown]
  - Infusion related reaction [Unknown]
  - Hypertension [Recovered/Resolved]
  - Gingival pain [Recovered/Resolved]

NARRATIVE: CASE EVENT DATE: 20130819
